FAERS Safety Report 4313174-8 (Version None)
Quarter: 2004Q1

REPORT INFORMATION
  Report Type: 
  Country: None (occurrence: None)
  Receive Date: 20040304
  Receipt Date: 20040213
  Transmission Date: 20041129
  Serious: Yes (Death, Congenital Anomaly)
  Sender: FDA-Public Use
  Company Number: EWC040238079

PATIENT
  Sex: 0

DRUGS (1)
  1. FONTEX-ORAL (FLUOXETINE) (FLUOXETINE HYDROCHLORIDE) [Suspect]

REACTIONS (4)
  - ABORTION INDUCED [None]
  - COMPLICATIONS OF MATERNAL EXPOSURE TO THERAPEUTIC DRUGS [None]
  - CONGENITAL SPINAL CORD ANOMALY [None]
  - DRUG EXPOSURE DURING PREGNANCY [None]
